FAERS Safety Report 25732792 (Version 1)
Quarter: 2025Q3

REPORT INFORMATION
  Report Type: Spontaneous
  Country: US (occurrence: US)
  Receive Date: 20250827
  Receipt Date: 20250827
  Transmission Date: 20251020
  Serious: Yes (Other)
  Sender: AMGEN
  Company Number: US-AMGEN-USASP2025166483

PATIENT
  Age: 48 Year
  Sex: Female

DRUGS (15)
  1. INFLIXIMAB [Suspect]
     Active Substance: INFLIXIMAB
     Indication: Rheumatoid arthritis
     Route: 065
  2. INFLIXIMAB [Suspect]
     Active Substance: INFLIXIMAB
     Indication: Rheumatic disorder
     Route: 065
  3. RITUXIMAB [Suspect]
     Active Substance: RITUXIMAB
     Indication: Rheumatic disorder
     Route: 065
  4. ETANERCEPT [Suspect]
     Active Substance: ETANERCEPT
     Indication: Rheumatoid arthritis
     Route: 065
  5. PREDNISONE [Suspect]
     Active Substance: PREDNISONE
     Indication: Immunosuppressant drug therapy
     Route: 065
  6. AZATHIOPRINE [Suspect]
     Active Substance: AZATHIOPRINE
     Indication: Rheumatic disorder
     Route: 065
  7. CYCLOPHOSPHAMIDE [Suspect]
     Active Substance: CYCLOPHOSPHAMIDE
     Indication: Rheumatic disorder
     Route: 040
  8. IMATINIB [Suspect]
     Active Substance: IMATINIB
     Indication: Rheumatic disorder
     Route: 065
  9. TOFACITINIB [Suspect]
     Active Substance: TOFACITINIB
     Indication: Rheumatic disorder
     Route: 065
  10. SULFASALAZINE [Concomitant]
     Active Substance: SULFASALAZINE
  11. HYDROXYCHLOROQUINE [Concomitant]
     Active Substance: HYDROXYCHLOROQUINE
  12. METHOTREXATE [Concomitant]
     Active Substance: METHOTREXATE
     Indication: Rheumatoid arthritis
  13. LEFLUNOMIDE [Concomitant]
     Active Substance: LEFLUNOMIDE
     Indication: Rheumatoid arthritis
  14. TOCILIZUMAB [Concomitant]
     Active Substance: TOCILIZUMAB
     Indication: Rheumatoid arthritis
     Route: 065
  15. ABATACEPT [Concomitant]
     Active Substance: ABATACEPT
     Indication: Rheumatoid arthritis

REACTIONS (4)
  - Serum sickness [Unknown]
  - Therapy non-responder [Unknown]
  - Off label use [Unknown]
  - Therapy partial responder [Unknown]
